FAERS Safety Report 16695539 (Version 2)
Quarter: 2019Q4

REPORT INFORMATION
  Report Type: Spontaneous
  Country: US (occurrence: US)
  Receive Date: 20190813
  Receipt Date: 20191015
  Transmission Date: 20200122
  Serious: No
  Sender: FDA-Public Use
  Company Number: US-BIOGEN-2019BI00773071

PATIENT
  Sex: Female

DRUGS (1)
  1. AVONEX [Suspect]
     Active Substance: INTERFERON BETA-1A
     Indication: MULTIPLE SCLEROSIS
     Dosage: MEDICATION ERROR
     Route: 065
     Dates: start: 19980310

REACTIONS (4)
  - Migraine [Recovered/Resolved]
  - Needle issue [Unknown]
  - Headache [Not Recovered/Not Resolved]
  - Chills [Recovered/Resolved]
